FAERS Safety Report 9321089 (Version 1)
Quarter: 2013Q2

REPORT INFORMATION
  Report Type: Spontaneous
  Country: US (occurrence: None)
  Receive Date: 20130530
  Receipt Date: 20130530
  Transmission Date: 20140414
  Serious: Yes (Other)
  Sender: FDA-Public Use
  Company Number: None

PATIENT
  Sex: Male

DRUGS (2)
  1. TRILEPTAL 300MG [Suspect]
     Indication: EPILEPSY
     Dosage: 300MG , 1 QAM PO
     Route: 048
     Dates: start: 2008
  2. TRILEPTAL [Suspect]
     Indication: EPILEPSY
     Dosage: 300MG 1 1/2 QPM PO
     Route: 048
     Dates: start: 2008

REACTIONS (2)
  - Convulsion [None]
  - Product substitution issue [None]
